FAERS Safety Report 7550196-8 (Version None)
Quarter: 2011Q2

REPORT INFORMATION
  Report Type: 
  Country: None (occurrence: None)
  Receive Date: 20110615
  Receipt Date: 20110613
  Transmission Date: 20111010
  Serious: Yes (Hospitalization, Other)
  Sender: FDA-Public Use
  Company Number: US-PFIZER INC-2011129888

PATIENT
  Sex: Female

DRUGS (3)
  1. ZOLOFT [Concomitant]
     Dosage: 100 MG, UNK
  2. VISTARIL [Concomitant]
     Dosage: 50 MG, UNK
  3. GEODON [Suspect]
     Dosage: 20 MG, 4X/DAY
     Route: 048
     Dates: start: 20110413, end: 20110601

REACTIONS (3)
  - ELECTROCARDIOGRAM QT PROLONGED [None]
  - ELECTROCARDIOGRAM T WAVE ABNORMAL [None]
  - PNEUMONIA [None]
